FAERS Safety Report 18215058 (Version 2)
Quarter: 2020Q4

REPORT INFORMATION
  Report Type: Report from Study
  Country: US (occurrence: US)
  Receive Date: 20200831
  Receipt Date: 20201024
  Transmission Date: 20210113
  Serious: No
  Sender: FDA-Public Use
  Company Number: NVSC2020US239328

PATIENT
  Age: 58 Year
  Sex: Male

DRUGS (1)
  1. COSENTYX [Suspect]
     Active Substance: SECUKINUMAB
     Indication: PSORIASIS
     Dosage: 300 MG, QMO
     Route: 058
     Dates: start: 202002

REACTIONS (1)
  - Injection site bruising [Recovered/Resolved]

NARRATIVE: CASE EVENT DATE: 20200710
